FAERS Safety Report 5766221-0 (Version None)
Quarter: 2008Q2

REPORT INFORMATION
  Report Type: 
  Country: None (occurrence: None)
  Receive Date: 20080606
  Receipt Date: 20080522
  Transmission Date: 20081010
  Serious: Yes (Hospitalization)
  Sender: FDA-Public Use
  Company Number: ALA_00061_2008

PATIENT
  Sex: Female
  Weight: 54.4316 kg

DRUGS (4)
  1. TRILYTE [Suspect]
     Indication: COLONOSCOPY
     Dosage: (DF ORAL)
     Route: 048
     Dates: start: 20080515, end: 20080515
  2. SINGULAIR [Concomitant]
  3. LORAZEPAM (UNKNOWN) [Concomitant]
  4. ALBUTEROL /00139501/ (UNKNOWN) [Concomitant]

REACTIONS (2)
  - ASTHMA [None]
  - LOSS OF CONSCIOUSNESS [None]
